FAERS Safety Report 8820756 (Version 1)
Quarter: 2012Q4

REPORT INFORMATION
  Report Type: 
  Country: DE (occurrence: DE)
  Receive Date: 20121002
  Receipt Date: 20121002
  Transmission Date: 20130627
  Serious: Yes (Hospitalization, Congenital Anomaly)
  Sender: FDA-Public Use
  Company Number: DE-ARROW-2012-16444

PATIENT
  Sex: Female
  Weight: 3.4 kg

DRUGS (5)
  1. LAMOTRIGINE (UNKNOWN) [Suspect]
     Indication: EPILEPSY
     Dosage: ^400 [mg/d ]/ 200mg-0-200mg^ ]
     Route: 064
     Dates: start: 20110709, end: 20120321
  2. INFLUENZA VACCINE [Suspect]
     Indication: IMMUNISATION
     Route: 064
  3. HUMALOG [Concomitant]
     Indication: TYPE 1 DIABETES MELLITUS
     Dosage: insulin pump
     Route: 064
     Dates: start: 20110709, end: 20120321
  4. FOLIC ACID [Concomitant]
     Indication: PROPHYLAXIS OF NEURAL TUBE DEFECT
     Dosage: 5 [mg/d ]
     Route: 064
  5. NOVORAPID [Concomitant]
     Indication: TYPE 1 DIABETES MELLITUS
     Dosage: UNK
     Route: 064
     Dates: start: 20110709, end: 20120321

REACTIONS (3)
  - Gastroschisis [Recovered/Resolved with Sequelae]
  - Haemangioma [Unknown]
  - Atrial septal defect [Unknown]
